FAERS Safety Report 19359280 (Version 1)
Quarter: 2021Q2

REPORT INFORMATION
  Report Type: Spontaneous
  Country: US (occurrence: US)
  Receive Date: 20210601
  Receipt Date: 20210601
  Transmission Date: 20210717
  Serious: Yes (Hospitalization, Other)
  Sender: FDA-Public Use
  Company Number: US-GLAXOSMITHKLINE-US2021112546

PATIENT
  Sex: Female

DRUGS (3)
  1. BENLYSTA [Suspect]
     Active Substance: BELIMUMAB
     Dosage: UNK, CYC
     Route: 058
     Dates: start: 202010
  2. BENLYSTA [Suspect]
     Active Substance: BELIMUMAB
     Indication: SYSTEMIC LUPUS ERYTHEMATOSUS
     Dosage: UNK, CYC
     Route: 058
     Dates: start: 202008, end: 202010
  3. COUMADIN [Concomitant]
     Active Substance: WARFARIN SODIUM
     Indication: PRODUCT USED FOR UNKNOWN INDICATION
     Dosage: UNK

REACTIONS (8)
  - Asthenia [Not Recovered/Not Resolved]
  - International normalised ratio increased [Unknown]
  - Rib fracture [Recovered/Resolved]
  - Diarrhoea [Not Recovered/Not Resolved]
  - Alopecia [Recovered/Resolved]
  - Pulmonary haemorrhage [Recovered/Resolved]
  - Pneumothorax [Recovered/Resolved]
  - Fall [Not Recovered/Not Resolved]

NARRATIVE: CASE EVENT DATE: 2020
